FAERS Safety Report 6764960-6 (Version None)
Quarter: 2010Q2

REPORT INFORMATION
  Report Type: 
  Country: None (occurrence: None)
  Receive Date: 20100609
  Receipt Date: 20100506
  Transmission Date: 20101027
  Serious: No
  Sender: FDA-Public Use
  Company Number: 2010011227

PATIENT
  Age: 9 Year
  Sex: Male
  Weight: 23.1334 kg

DRUGS (1)
  1. CHILDREN'S ZYRTEC ALLERGY [Suspect]
     Indication: HYPERSENSITIVITY
     Dosage: 1-2 TSPS EVERY NIGHT, ORAL
     Route: 048
     Dates: start: 20090501, end: 20100505

REACTIONS (2)
  - ABDOMINAL DISCOMFORT [None]
  - PRODUCT QUALITY ISSUE [None]
